FAERS Safety Report 13242375 (Version 2)
Quarter: 2017Q2

REPORT INFORMATION
  Report Type: Spontaneous
  Country: JP (occurrence: JP)
  Receive Date: 20170216
  Receipt Date: 20170606
  Transmission Date: 20170830
  Serious: Yes (Other)
  Sender: FDA-Public Use
  Company Number: JP-MALLINCKRODT-T201605986

PATIENT
  Age: 62 Year
  Sex: Female
  Weight: 60 kg

DRUGS (20)
  1. MUCOSTA [Concomitant]
     Active Substance: REBAMIPIDE
     Dosage: 300 MG, UNK
     Route: 048
  2. RANMARK [Concomitant]
     Active Substance: DENOSUMAB
     Indication: ANALGESIC THERAPY
     Dosage: 120 MG, UNK
     Route: 058
     Dates: start: 20150430, end: 20151028
  3. LANSOPRAZOLE. [Concomitant]
     Active Substance: LANSOPRAZOLE
     Dosage: 30 MG, UNK
     Route: 048
     Dates: end: 20150318
  4. MAGMITT [Concomitant]
     Active Substance: MAGNESIUM OXIDE
     Dosage: 990 MG, UNK
     Route: 048
  5. ATARAX [Concomitant]
     Active Substance: HYDROXYZINE HYDROCHLORIDE
     Dosage: 25 MG, UNK
     Route: 048
  6. METHADONE [Suspect]
     Active Substance: METHADONE HYDROCHLORIDE
     Dosage: 5 MG (5 MG DAILLY DOSE)
     Route: 048
     Dates: start: 20151028, end: 20151117
  7. GASTER [Concomitant]
     Active Substance: FAMOTIDINE
     Dosage: 40 MG, UNK
     Route: 048
     Dates: start: 20150316
  8. ZOLEDRONIC ACID [Concomitant]
     Active Substance: ZOLEDRONIC ACID
     Indication: ANALGESIC THERAPY
     Dosage: 4 UNK, UNK
     Route: 051
     Dates: start: 20150224, end: 20150224
  9. METHADONE [Suspect]
     Active Substance: METHADONE HYDROCHLORIDE
     Indication: CANCER PAIN
     Dosage: 5 MG (15 MG DAILY DOSE)
     Route: 048
     Dates: start: 20150225, end: 20150512
  10. METHADONE [Suspect]
     Active Substance: METHADONE HYDROCHLORIDE
     Dosage: 5 MG (10 MG DAILLY DOSE)
     Route: 048
     Dates: start: 20150513, end: 20151027
  11. DICLOFENAC [Concomitant]
     Active Substance: DICLOFENAC
     Indication: ANALGESIC THERAPY
     Dosage: 25 MG, PRN
     Route: 054
     Dates: start: 20150226, end: 20150226
  12. VITAMEDIN [Concomitant]
     Active Substance: CYANOCOBALAMIN\PYRIDOXINE HYDROCHLORIDE\THIAMINE
     Dosage: 3 DF, UNK
     Route: 048
     Dates: start: 20150527, end: 20150616
  13. VINORELBINE DITARTRATE [Concomitant]
     Active Substance: VINORELBINE TARTRATE
     Dosage: 37 MG
     Route: 051
     Dates: start: 20150302, end: 20151111
  14. ZYPREXA [Concomitant]
     Active Substance: OLANZAPINE
     Dosage: 2.5 MG, UNK
     Route: 048
     Dates: start: 20150501, end: 20150513
  15. DICLOFENAC [Concomitant]
     Active Substance: DICLOFENAC
     Dosage: 75 MG
     Route: 048
     Dates: start: 20150228, end: 20150320
  16. CHOCOLA A [Concomitant]
     Dosage: 1 DF UNK
     Route: 048
     Dates: start: 20150527, end: 20150616
  17. ZYPREXA [Concomitant]
     Active Substance: OLANZAPINE
     Dosage: 5 MG, UNK
     Route: 048
     Dates: start: 20150303, end: 20150430
  18. DENOTAS [Concomitant]
     Active Substance: CALCIUM CARBONATE\CHOLECALCIFEROL\MAGNESIUM CARBONATE
     Dosage: 2 DF, UNK
     Route: 048
     Dates: start: 20150513, end: 20151119
  19. ZYPREXA [Concomitant]
     Active Substance: OLANZAPINE
     Dosage: 2.5 MG, UNK
     Route: 048
     Dates: start: 20150225, end: 20150302
  20. KYTRIL [Concomitant]
     Active Substance: GRANISETRON HYDROCHLORIDE
     Dosage: 2 MG, UNK
     Route: 048
     Dates: start: 20150320, end: 20150326

REACTIONS (5)
  - Neutropenia [Recovered/Resolved]
  - Dizziness [Recovered/Resolved]
  - Anaemia [Not Recovered/Not Resolved]
  - Hypocalcaemia [Recovering/Resolving]
  - Nausea [Recovering/Resolving]

NARRATIVE: CASE EVENT DATE: 20150302
